FAERS Safety Report 16116680 (Version 1)
Quarter: 2019Q1

REPORT INFORMATION
  Report Type: Report from Study
  Country: US (occurrence: US)
  Receive Date: 20190326
  Receipt Date: 20190326
  Transmission Date: 20190418
  Serious: Yes (Death, Other)
  Sender: FDA-Public Use
  Company Number: US-GILEAD-2019-0394303

PATIENT
  Age: 83 Year
  Sex: Male

DRUGS (17)
  1. GLIMEPIRIDE. [Concomitant]
     Active Substance: GLIMEPIRIDE
  2. BUMETANIDE. [Concomitant]
     Active Substance: BUMETANIDE
  3. TADALAFIL. [Concomitant]
     Active Substance: TADALAFIL
  4. AMBRISENTAN [Suspect]
     Active Substance: AMBRISENTAN
     Dosage: 10 MG, QD
     Route: 065
     Dates: start: 20190201
  5. LATANOPROST. [Concomitant]
     Active Substance: LATANOPROST
  6. METOPROLOL TARTRATE. [Concomitant]
     Active Substance: METOPROLOL TARTRATE
  7. METOLAZONE. [Concomitant]
     Active Substance: METOLAZONE
  8. XARELTO [Concomitant]
     Active Substance: RIVAROXABAN
  9. ALLOPURINOL. [Concomitant]
     Active Substance: ALLOPURINOL
  10. AMIDRINE [Concomitant]
  11. DORZOLAMIDE [Concomitant]
     Active Substance: DORZOLAMIDE
  12. AMBRISENTAN [Suspect]
     Active Substance: AMBRISENTAN
     Indication: PULMONARY ARTERIAL HYPERTENSION
     Dosage: 5 MG, QD
     Route: 065
  13. POTASSIUM CHLORIDE. [Concomitant]
     Active Substance: POTASSIUM CHLORIDE
  14. CARTIA XT [Concomitant]
     Active Substance: DILTIAZEM HYDROCHLORIDE
  15. LEVOTHYROXINE. [Concomitant]
     Active Substance: LEVOTHYROXINE
  16. ATORVASTATIN [Concomitant]
     Active Substance: ATORVASTATIN
  17. MAGNESIUM OXIDE. [Concomitant]
     Active Substance: MAGNESIUM OXIDE

REACTIONS (2)
  - Dizziness [Not Recovered/Not Resolved]
  - Disease progression [Fatal]
